FAERS Safety Report 7618866-0 (Version None)
Quarter: 2011Q3

REPORT INFORMATION
  Report Type: 
  Country: None (occurrence: None)
  Receive Date: 20110718
  Receipt Date: 20110707
  Transmission Date: 20111222
  Serious: Yes (Life-Threatening, Hospitalization, Disabling, Other)
  Sender: FDA-Public Use
  Company Number: CA-BAYER-2011-058949

PATIENT
  Age: 83 Year
  Sex: Female
  Weight: 75 kg

DRUGS (15)
  1. SYNTHROID [Concomitant]
  2. TIAZAC [Concomitant]
  3. ZESTRIL [Concomitant]
  4. AVELOX [Suspect]
     Dosage: 400 MG, QD
     Route: 048
  5. BUPRENORPHINE [Concomitant]
     Route: 062
  6. CRESTOR [Concomitant]
  7. ALENDRONATE SODIUM [Concomitant]
  8. RABEPRAZOLE SODIUM [Concomitant]
  9. CLONAZEPAM [Concomitant]
  10. ASPIRIN [Concomitant]
  11. SPIRIVA [Concomitant]
  12. SYMBICORT [Concomitant]
  13. HYDROCHLOROTHIAZIDE [Concomitant]
  14. LYRICA [Concomitant]
  15. SENOKOT [Concomitant]

REACTIONS (11)
  - DIARRHOEA [None]
  - OROPHARYNGEAL PAIN [None]
  - RHINORRHOEA [None]
  - GENERALISED ERYTHEMA [None]
  - PYREXIA [None]
  - DERMATITIS BULLOUS [None]
  - COUGH [None]
  - HEADACHE [None]
  - CHILLS [None]
  - PRURITUS [None]
  - MALAISE [None]
